FAERS Safety Report 5761763-6 (Version None)
Quarter: 2008Q2

REPORT INFORMATION
  Report Type: 
  Country: None (occurrence: None)
  Receive Date: 20080602
  Receipt Date: 20080520
  Transmission Date: 20081010
  Serious: Yes (Other)
  Sender: FDA-Public Use
  Company Number: 08-242

PATIENT
  Age: 17 Year
  Sex: Female
  Weight: 48.9885 kg

DRUGS (3)
  1. ALEVE [Suspect]
     Indication: MIGRAINE
     Dosage: 440 MG, DAILY, ORAL
     Route: 048
     Dates: end: 20080426
  2. ALEVE [Suspect]
     Indication: MIGRAINE
     Dosage: 440 MG, DAILY, ORAL
     Route: 048
     Dates: end: 20080401
  3. ALEVE [Suspect]
     Indication: MIGRAINE
     Dosage: 440 MG, ONCE, ORAL
     Route: 048
     Dates: start: 20080414, end: 20080414

REACTIONS (6)
  - BLINDNESS UNILATERAL [None]
  - FOOD INTOLERANCE [None]
  - HEMIPLEGIA [None]
  - HYPOAESTHESIA [None]
  - PARAESTHESIA [None]
  - VOMITING [None]
